FAERS Safety Report 7516509-8 (Version None)
Quarter: 2011Q2

REPORT INFORMATION
  Report Type: 
  Country: None (occurrence: None)
  Receive Date: 20110601
  Receipt Date: 20110524
  Transmission Date: 20111010
  Serious: Yes (Other)
  Sender: FDA-Public Use
  Company Number: A0928957A

PATIENT
  Age: 71 Year
  Sex: Male

DRUGS (3)
  1. FLUTICASONE NASAL SPRAY [Concomitant]
  2. BLOOD PRESSURE MEDICATION [Concomitant]
  3. ADVAIR DISKUS 100/50 [Suspect]
     Indication: CHRONIC OBSTRUCTIVE PULMONARY DISEASE
     Dosage: 1PUFF TWICE PER DAY
     Route: 055
     Dates: start: 20090101

REACTIONS (2)
  - CATARACT [None]
  - BRONCHITIS [None]
